FAERS Safety Report 8935194 (Version 1)
Quarter: 2012Q4

REPORT INFORMATION
  Report Type: 
  Country: US (occurrence: US)
  Receive Date: 20121129
  Receipt Date: 20121129
  Transmission Date: 20130627
  Serious: No
  Sender: FDA-Public Use
  Company Number: US-009507513-1211USA012323

PATIENT
  Age: 78 Year
  Sex: Female
  Weight: 63.49 kg

DRUGS (3)
  1. CLARITIN [Suspect]
     Indication: SEASONAL ALLERGY
     Dosage: 10 mg, qd
     Route: 048
     Dates: start: 2012
  2. CLARITIN [Suspect]
     Dosage: 20 mg, Once
     Route: 048
     Dates: start: 20121011
  3. EVISTA [Concomitant]
     Indication: PRODUCT USED FOR UNKNOWN INDICATION
     Dosage: UNK, Unknown
     Route: 065

REACTIONS (1)
  - Accidental overdose [Unknown]
